FAERS Safety Report 5795738-8 (Version None)
Quarter: 2008Q2

REPORT INFORMATION
  Report Type: 
  Country: None (occurrence: None)
  Receive Date: 20080630
  Receipt Date: 20080623
  Transmission Date: 20081010
  Serious: Yes (Death)
  Sender: FDA-Public Use
  Company Number: NO-BOEHRINGER INGELHEIM GMBH, GERMANY-2008-SW-00169NO

PATIENT
  Sex: Female

DRUGS (2)
  1. MOBIC [Suspect]
     Indication: PAIN
     Route: 048
     Dates: end: 20080602
  2. CLARITHROMYCIN [Concomitant]
     Indication: C-REACTIVE PROTEIN INCREASED
     Route: 048
     Dates: start: 20080526, end: 20080602

REACTIONS (5)
  - ABDOMINAL PAIN UPPER [None]
  - ANAEMIA [None]
  - GASTRIC ULCER HAEMORRHAGE [None]
  - HAEMATEMESIS [None]
  - MELAENA [None]
